FAERS Safety Report 5084285-7 (Version None)
Quarter: 2006Q3

REPORT INFORMATION
  Report Type: 
  Country: None (occurrence: None)
  Receive Date: 20060817
  Receipt Date: 20060817
  Transmission Date: 20061208
  Serious: No
  Sender: FDA-Public Use
  Company Number: None

PATIENT
  Sex: Male
  Weight: 86.1834 kg

DRUGS (2)
  1. CLINDAMYCIN HCL [Suspect]
     Indication: CELLULITIS
     Dosage: 900 MG Q8H IV
     Route: 042
     Dates: start: 20060722, end: 20060727
  2. CLINDAMYCIN HCL [Suspect]
     Indication: OSTEOMYELITIS
     Dosage: 900 MG Q8H IV
     Route: 042
     Dates: start: 20060722, end: 20060727

REACTIONS (2)
  - ERYTHEMA [None]
  - RASH [None]
